FAERS Safety Report 9669958 (Version 1)
Quarter: 2013Q4

REPORT INFORMATION
  Report Type: Spontaneous
  Country: US (occurrence: US)
  Receive Date: 20131105
  Receipt Date: 20131105
  Transmission Date: 20140711
  Serious: No
  Sender: FDA-Public Use
  Company Number: US-BAYER-2013-134878

PATIENT
  Age: 32 Year
  Sex: Female

DRUGS (2)
  1. GADAVIST [Suspect]
     Indication: NERVOUS SYSTEM DISORDER
     Dosage: UNK
     Route: 042
     Dates: start: 20131101
  2. GADAVIST [Suspect]
     Indication: COMPUTERISED TOMOGRAM

REACTIONS (3)
  - Erythema [Recovered/Resolved]
  - Pruritus [Recovering/Resolving]
  - Pruritus [Recovering/Resolving]
